FAERS Safety Report 6159367-9 (Version None)
Quarter: 2009Q2

REPORT INFORMATION
  Report Type: 
  Country: None (occurrence: None)
  Receive Date: 20090417
  Receipt Date: 20090406
  Transmission Date: 20091009
  Serious: Yes (Hospitalization)
  Sender: FDA-Public Use
  Company Number: US-ELI_LILLY_AND_COMPANY-US200802006095

PATIENT
  Sex: Female
  Weight: 104.31 kg

DRUGS (27)
  1. ZYPREXA [Suspect]
     Indication: SCHIZOAFFECTIVE DISORDER
     Dosage: 5 MG, EACH EVENING
     Route: 065
     Dates: start: 20000107
  2. ZYPREXA [Suspect]
     Dosage: 2.5 MG, EACH MORNING
  3. PROZAC [Suspect]
     Dosage: 1 D/F, QOD
     Dates: start: 19890101
  4. PROZAC [Suspect]
     Dosage: 20 MG, DAILY (1/D)
     Dates: start: 19950101
  5. PROZAC [Suspect]
     Dosage: 10 MG, DAILY (1/D)
     Dates: start: 19960101, end: 19960401
  6. PROZAC [Suspect]
     Dosage: 20 MG, 3/W
     Dates: start: 19980701
  7. PROZAC [Suspect]
     Dosage: 5 MG, UNK
     Dates: start: 20010131
  8. PROZAC [Suspect]
     Dosage: 10 MG, UNK
  9. PROZAC [Suspect]
     Dosage: 10 MG, EACH MORNING
     Dates: start: 20011023
  10. NAVANE [Concomitant]
     Dosage: 8 MG, 3/D
  11. NAVANE [Concomitant]
     Dosage: 2 MG, 3/D
  12. NAVANE [Concomitant]
     Dosage: 6 MG, DAILY (1/D)
  13. NAVANE [Concomitant]
     Dosage: 4 MG, DAILY (1/D)
  14. NAVANE [Concomitant]
     Dosage: 5 MG, DAILY (1/D)
  15. NAVANE [Concomitant]
     Dosage: 5 MG, 2/D
  16. DEPAKOTE [Concomitant]
     Dosage: UNK, AS NEEDED
  17. CAFFEINE [Concomitant]
  18. SERZONE [Concomitant]
     Dosage: 50 MG, 2/D
  19. SERZONE [Concomitant]
     Dosage: 100 MG, 2/D
  20. HALDOL /SCH/ [Concomitant]
     Dosage: 2.5 MG, 2/D
  21. HALDOL /SCH/ [Concomitant]
     Dosage: 4 MG, EACH EVENING
  22. WELLBUTRIN [Concomitant]
     Indication: DEPRESSION
  23. NICORETTE [Concomitant]
     Indication: SMOKING CESSATION THERAPY
  24. AMITRIPTLINE HYDROCHLORIDE TAB [Concomitant]
     Dosage: 25 MG, EACH MORNING
  25. KLONOPIN [Concomitant]
     Dosage: 0.5 MG, EACH EVENING
  26. LITHIUM CARBONATE [Concomitant]
     Dosage: 300 MG, EACH EVENING
  27. SERENTIL [Concomitant]
     Dosage: 10 MG, 2/D

REACTIONS (12)
  - ANXIETY [None]
  - CONFUSIONAL STATE [None]
  - DIABETES MELLITUS [None]
  - DRUG INEFFECTIVE [None]
  - DYSPHORIA [None]
  - FATIGUE [None]
  - HEADACHE [None]
  - ORGASM ABNORMAL [None]
  - OVERDOSE [None]
  - PARANOIA [None]
  - SUICIDAL IDEATION [None]
  - WEIGHT INCREASED [None]
